FAERS Safety Report 9427222 (Version 1)
Quarter: 2013Q3

REPORT INFORMATION
  Report Type: Report from Study
  Country: US (occurrence: US)
  Receive Date: 20130730
  Receipt Date: 20130730
  Transmission Date: 20140515
  Serious: No
  Sender: FDA-Public Use
  Company Number: US-ABBOTT-12P-163-0977894-00

PATIENT
  Sex: Male
  Weight: 117.13 kg

DRUGS (7)
  1. NIASPAN (COATED) [Suspect]
     Indication: PRODUCT USED FOR UNKNOWN INDICATION
     Dates: start: 20120903, end: 20120905
  2. NIASPAN (COATED) [Suspect]
     Dates: start: 20120906
  3. LISINOPRIL [Concomitant]
     Indication: PRODUCT USED FOR UNKNOWN INDICATION
  4. PRADAXA [Concomitant]
     Indication: PRODUCT USED FOR UNKNOWN INDICATION
  5. TOPROL [Concomitant]
     Indication: PRODUCT USED FOR UNKNOWN INDICATION
  6. ADVAIR [Concomitant]
     Indication: PRODUCT USED FOR UNKNOWN INDICATION
  7. PROAIR [Concomitant]
     Indication: PRODUCT USED FOR UNKNOWN INDICATION

REACTIONS (3)
  - Dizziness [Recovered/Resolved]
  - Flushing [Recovered/Resolved]
  - Hot flush [Recovered/Resolved]
